FAERS Safety Report 10831496 (Version 1)
Quarter: 2015Q1

REPORT INFORMATION
  Report Type: Report from Study
  Country: US (occurrence: US)
  Receive Date: 20150219
  Receipt Date: 20150219
  Transmission Date: 20150721
  Serious: No
  Sender: FDA-Public Use
  Company Number: US-ABBVIE-14P-163-1192569-00

PATIENT
  Age: 53 Year
  Sex: Female

DRUGS (12)
  1. HUMIRA [Suspect]
     Active Substance: ADALIMUMAB
     Indication: CROHN^S DISEASE
     Dates: start: 20131204, end: 20131204
  2. HUMIRA [Suspect]
     Active Substance: ADALIMUMAB
     Dates: start: 20140108
  3. ZOFRAN [Concomitant]
     Active Substance: ONDANSETRON HYDROCHLORIDE
     Indication: NAUSEA
     Dosage: 2 EVERY 8 HOURS AS NEEDED
  4. IBUPROFEN. [Concomitant]
     Active Substance: IBUPROFEN
     Indication: ARNOLD-CHIARI MALFORMATION
     Dosage: UP TO 4 TIMES DAILY AS NEEDED
  5. XANAX [Concomitant]
     Active Substance: ALPRAZOLAM
     Indication: ANXIETY
  6. HUMIRA [Suspect]
     Active Substance: ADALIMUMAB
     Dates: start: 20131218, end: 20131218
  7. PHENERGAN [Concomitant]
     Active Substance: PROMETHAZINE HYDROCHLORIDE
     Indication: NAUSEA
     Dosage: 2 TABLETS EVERY 6-8 HOURS AS NEEDED
  8. ELAVIL [Concomitant]
     Active Substance: AMITRIPTYLINE HYDROCHLORIDE
     Indication: ARNOLD-CHIARI MALFORMATION
  9. LIBRAX [Concomitant]
     Active Substance: CHLORDIAZEPOXIDE HYDROCHLORIDE\CLIDINIUM BROMIDE
     Indication: CROHN^S DISEASE
  10. PREDNISONE. [Concomitant]
     Active Substance: PREDNISONE
     Indication: PRODUCT USED FOR UNKNOWN INDICATION
     Dosage: 10 MG 3 TIMES DAILY THIS WEEK, DECREASE BY 1 EACH WEEK UNTIL ALL MEDS ARE GONE
  11. BENTYL [Concomitant]
     Active Substance: DICYCLOMINE HYDROCHLORIDE
     Indication: CROHN^S DISEASE
  12. IRON INFUSIONS [Concomitant]
     Indication: PRODUCT USED FOR UNKNOWN INDICATION
     Dosage: AS NEEDED PERIODICALLY

REACTIONS (5)
  - Rash erythematous [Recovered/Resolved]
  - Pruritus [Recovering/Resolving]
  - Flushing [Unknown]
  - Pruritus [Recovered/Resolved]
  - Rash erythematous [Recovered/Resolved]

NARRATIVE: CASE EVENT DATE: 20131219
